FAERS Safety Report 9619863 (Version 1)
Quarter: 2013Q4

REPORT INFORMATION
  Report Type: Spontaneous
  Country: US (occurrence: US)
  Receive Date: 20131014
  Receipt Date: 20131014
  Transmission Date: 20140711
  Serious: Yes (Other)
  Sender: FDA-Public Use
  Company Number: US-TEVA-437033USA

PATIENT
  Age: 27 Year
  Sex: Female
  Weight: 56.75 kg

DRUGS (2)
  1. PARAGARD 380A [Suspect]
     Indication: CONTRACEPTION
     Route: 015
     Dates: start: 201302, end: 20131006
  2. ERYTHROMYCIN [Concomitant]
     Dates: start: 20130916

REACTIONS (13)
  - Gynaecological chlamydia infection [Not Recovered/Not Resolved]
  - Pelvic inflammatory disease [Not Recovered/Not Resolved]
  - Abscess [Not Recovered/Not Resolved]
  - Vaginal discharge [Not Recovered/Not Resolved]
  - Pelvic discomfort [Not Recovered/Not Resolved]
  - Vaginal discharge [Recovered/Resolved]
  - Vaginal odour [Recovered/Resolved]
  - Dysmenorrhoea [Unknown]
  - Abdominal discomfort [Unknown]
  - Nausea [Unknown]
  - Menorrhagia [Unknown]
  - Abdominal distension [Unknown]
  - Local swelling [Unknown]
